FAERS Safety Report 22150082 (Version 1)
Quarter: 2023Q1

REPORT INFORMATION
  Report Type: Report from Study
  Country: GB (occurrence: GB)
  Receive Date: 20230329
  Receipt Date: 20230329
  Transmission Date: 20230417
  Serious: Yes (Other)
  Sender: FDA-Public Use
  Company Number: GB-ALIMERA SCIENCES LIMITED-GB-IL-2017-003436

PATIENT
  Age: 81 Year
  Sex: Female

DRUGS (13)
  1. ILUVIEN [Suspect]
     Active Substance: FLUOCINOLONE ACETONIDE
     Indication: Diabetic retinal oedema
     Dosage: 0.25 MCG RIGHT EYE
     Route: 031
     Dates: start: 20140722
  2. Gliclazide 160 mg tablets [Concomitant]
     Indication: Type 2 diabetes mellitus
     Dosage: 160 MG, UNK
     Dates: start: 19800101
  3. METFORMIN [Concomitant]
     Active Substance: METFORMIN HYDROCHLORIDE
     Indication: Type 2 diabetes mellitus
     Dosage: 850 MG, UNK
     Dates: start: 19860101
  4. SIMVASTATIN [Concomitant]
     Active Substance: SIMVASTATIN
     Indication: Hypercholesterolaemia
     Dosage: 40 MG, UNK
  5. Clinitas carboner [Concomitant]
     Indication: Dry eye
     Dosage: 0.2 %, UNK
     Dates: start: 20160114
  6. CLOPIDOGREL [Concomitant]
     Active Substance: CLOPIDOGREL BISULFATE
     Indication: Hypertension
     Dosage: 75 MG, UNK
  7. Gliclazide 80mg tablets [Concomitant]
     Indication: Type 2 diabetes mellitus
     Dosage: 80 MG, UNK
  8. Pioglitazone 15mg / Metformin 850mg [Concomitant]
     Indication: Type 2 diabetes mellitus
     Dosage: IOGLITAZONE 15MG / METFORMIN 850MG TABLETS
  9. HYALURONATE SODIUM [Concomitant]
     Active Substance: HYALURONATE SODIUM
     Indication: Dry eye
     Dosage: 0.2% EYE DROPS IN BOTH EYE
     Dates: start: 20160106
  10. Adacal-D3 chewable tablets tutti frutti [Concomitant]
     Indication: Mineral supplementation
     Dosage: UNK
  11. LANSOPRAZOLE [Concomitant]
     Active Substance: LANSOPRAZOLE
     Indication: Dyspepsia
     Dosage: 30 MG, UNK
  12. HYDROXOCOBALAMIN [Concomitant]
     Active Substance: HYDROXOCOBALAMIN
     Indication: Vitamin B12 deficiency
     Dosage: 1MG/ML SOLUTION FOR INJECTION AMPOULES
     Dates: start: 20150806
  13. Pioglitazone 15mg / Metformin 850mg [Concomitant]
     Indication: Type 2 diabetes mellitus

REACTIONS (2)
  - Vitrectomy [Recovered/Resolved]
  - Internal limiting membrane peeling [Recovered/Resolved]

NARRATIVE: CASE EVENT DATE: 20170327
